FAERS Safety Report 12321512 (Version 1)
Quarter: 2016Q2

REPORT INFORMATION
  Report Type: Spontaneous
  Country: US (occurrence: None)
  Receive Date: 20160429
  Receipt Date: 20160429
  Transmission Date: 20160815
  Serious: No
  Sender: FDA-Public Use
  Company Number: None

PATIENT
  Age: 47 Year
  Sex: Female
  Weight: 92.08 kg

DRUGS (6)
  1. MORPHINE [Concomitant]
     Active Substance: MORPHINE
  2. VITAMIN C [Concomitant]
     Active Substance: ASCORBIC ACID
  3. HYDROXYZINE PAMOATE 50MG BARR [Suspect]
     Active Substance: HYDROXYZINE PAMOATE
     Indication: SLEEP DISORDER
     Dosage: 1 CAPSULE(S) AT BEDTIME TAKEN BY MOUTH
     Route: 048
     Dates: start: 20160413, end: 20160427
  4. PROZAC [Concomitant]
     Active Substance: FLUOXETINE HYDROCHLORIDE
  5. PROTONIX [Concomitant]
     Active Substance: PANTOPRAZOLE SODIUM
  6. VITAMIN D [Concomitant]
     Active Substance: CHOLECALCIFEROL

REACTIONS (8)
  - Panic reaction [None]
  - Nausea [None]
  - Diarrhoea [None]
  - Muscle spasms [None]
  - Restlessness [None]
  - Dyspnoea [None]
  - Palpitations [None]
  - Headache [None]

NARRATIVE: CASE EVENT DATE: 20160427
